FAERS Safety Report 25277882 (Version 1)
Quarter: 2025Q2

REPORT INFORMATION
  Report Type: Spontaneous
  Country: US (occurrence: None)
  Receive Date: 20250507
  Receipt Date: 20250507
  Transmission Date: 20250717
  Serious: Yes (Death, Hospitalization)
  Sender: FDA-CTU
  Company Number: None

PATIENT
  Age: 66 Year
  Sex: Female
  Weight: 57.9 kg

DRUGS (1)
  1. MEGESTROL ACETATE [Suspect]
     Active Substance: MEGESTROL ACETATE
     Dates: end: 20250409

REACTIONS (15)
  - Haematuria [None]
  - Gastrointestinal haemorrhage [None]
  - Melaena [None]
  - Pleural effusion [None]
  - Vomiting [None]
  - Leukocytosis [None]
  - Nausea [None]
  - Deep vein thrombosis [None]
  - Hypoxia [None]
  - Hypotension [None]
  - Hypovolaemic shock [None]
  - Septic shock [None]
  - Poor prognosis [None]
  - Tachycardia [None]
  - Tumour haemorrhage [None]

NARRATIVE: CASE EVENT DATE: 20250405
